FAERS Safety Report 6665501-4 (Version None)
Quarter: 2010Q2

REPORT INFORMATION
  Report Type: 
  Country: None (occurrence: None)
  Receive Date: 20100402
  Receipt Date: 20100325
  Transmission Date: 20101027
  Serious: Yes (Other)
  Sender: FDA-Public Use
  Company Number: US-PFIZER INC-2010003078

PATIENT
  Sex: Female
  Weight: 63.5 kg

DRUGS (3)
  1. CELEBREX [Suspect]
     Indication: TENDONITIS
     Dosage: 200 MG, 2X/DAY
     Route: 048
     Dates: start: 20091101
  2. CELEBREX [Suspect]
     Dosage: 200 MG, 1X/DAY
     Dates: end: 20100106
  3. MULTI-VITAMINS [Concomitant]
     Dosage: UNK
     Route: 048

REACTIONS (1)
  - VENTRICULAR EXTRASYSTOLES [None]
